FAERS Safety Report 16262065 (Version 2)
Quarter: 2019Q2

REPORT INFORMATION
  Report Type: Spontaneous
  Country: US (occurrence: US)
  Receive Date: 20190501
  Receipt Date: 20190529
  Transmission Date: 20190711
  Serious: No
  Sender: FDA-Public Use
  Company Number: US-GILEAD-2019-0405146

PATIENT
  Age: 38 Year
  Sex: Male

DRUGS (4)
  1. VITAMIN B12 [VITAMIN B12 NOS] [Concomitant]
     Active Substance: CYANOCOBALAMIN
  2. VEMLIDY [Suspect]
     Active Substance: TENOFOVIR ALAFENAMIDE FUMARATE
     Indication: HEPATITIS D
     Dosage: 1 DOSAGE FORM, QD
     Route: 048
     Dates: start: 20190501
  3. VITAMIN C [ASCORBIC ACID;BIOFLAVONOIDS] [Concomitant]
  4. VEMLIDY [Suspect]
     Active Substance: TENOFOVIR ALAFENAMIDE FUMARATE
     Indication: CHRONIC HEPATITIS B
     Dosage: 25 MG
     Route: 048
     Dates: start: 201903

REACTIONS (4)
  - Dizziness [Unknown]
  - Fatigue [Unknown]
  - Impaired quality of life [Unknown]
  - Asthenia [Recovered/Resolved]
